FAERS Safety Report 5351080-0 (Version None)
Quarter: 2007Q2

REPORT INFORMATION
  Report Type: 
  Country: None (occurrence: None)
  Receive Date: 20070608
  Receipt Date: 20070531
  Transmission Date: 20071010
  Serious: Yes (Hospitalization)
  Sender: FDA-Public Use
  Company Number: IT-ABBOTT-07P-083-0357580-00

PATIENT
  Sex: Female
  Weight: 91 kg

DRUGS (25)
  1. HUMIRA [Suspect]
     Indication: RHEUMATOID ARTHRITIS
     Route: 058
     Dates: start: 20051228, end: 20061103
  2. HUMIRA [Suspect]
     Dates: start: 20061206, end: 20070316
  3. PANTOPRAZOLE SODIUM [Concomitant]
     Indication: ABDOMINAL PAIN UPPER
     Dates: start: 20061120, end: 20070503
  4. ATENOLOL [Concomitant]
     Indication: ATRIAL FIBRILLATION
     Dates: start: 20050503, end: 20070503
  5. POTASSIUM CANRENOATE [Concomitant]
     Indication: CARDIAC FAILURE
     Route: 048
     Dates: start: 20061130, end: 20070503
  6. ACETAMOL [Concomitant]
     Indication: RHEUMATOID ARTHRITIS
     Route: 048
     Dates: start: 20061106, end: 20070503
  7. TRIAZOLAM [Concomitant]
     Indication: DRUG USE FOR UNKNOWN INDICATION
     Route: 048
     Dates: start: 20061130, end: 20070503
  8. DIGOXIN [Concomitant]
     Indication: CARDIAC FAILURE
     Route: 048
     Dates: start: 20061106
  9. ALLOPURINOL [Concomitant]
     Indication: HYPERURICAEMIA
     Route: 048
     Dates: start: 20061120, end: 20070503
  10. PREDNISONE TAB [Concomitant]
     Indication: RHEUMATOID ARTHRITIS
     Dates: start: 20030116
  11. COUMADIN [Concomitant]
     Indication: ATRIAL FIBRILLATION
     Dates: start: 20030316
  12. METHOTREXATE [Concomitant]
     Indication: RHEUMATOID ARTHRITIS
     Dates: start: 19910101, end: 20010101
  13. LEFLUNOMIDE [Concomitant]
     Indication: RHEUMATOID ARTHRITIS
     Dates: start: 20010101, end: 20020301
  14. KINERET [Concomitant]
     Indication: RHEUMATOID ARTHRITIS
     Dates: start: 20030701, end: 20051101
  15. GOLD SALTS [Concomitant]
     Indication: RHEUMATOID ARTHRITIS
     Dates: start: 20030501, end: 20030701
  16. ETANERCEPT [Concomitant]
     Indication: RHEUMATOID ARTHRITIS
     Dates: start: 20020301, end: 20030401
  17. SULFASALAZINE [Concomitant]
     Indication: RHEUMATOID ARTHRITIS
     Dates: start: 19990101, end: 20010101
  18. FUROSEMIDE [Concomitant]
     Indication: HYPERTENSION
     Dates: start: 19970903
  19. VALSARTAN [Concomitant]
     Indication: HYPERTENSION
     Route: 048
     Dates: start: 20070131, end: 20070503
  20. OMEPRAZOLE [Concomitant]
     Indication: ABDOMINAL PAIN UPPER
     Route: 048
     Dates: start: 20070503
  21. AMIODARONE HCL [Concomitant]
     Indication: ATRIAL FIBRILLATION
     Route: 048
     Dates: start: 20070503
  22. MODURETIC 5-50 [Concomitant]
     Indication: HYPERTENSION
     Route: 048
     Dates: start: 20070503
  23. AMINOPHYLLINE HYDRATE [Concomitant]
     Indication: DRUG USE FOR UNKNOWN INDICATION
     Route: 048
     Dates: start: 20070503
  24. CEFAM [Concomitant]
     Indication: DRUG USE FOR UNKNOWN INDICATION
     Dates: start: 20070503
  25. POTASSIUM CHLORIDE [Concomitant]
     Indication: DRUG USE FOR UNKNOWN INDICATION
     Dates: start: 20070503

REACTIONS (5)
  - ASTHENIA [None]
  - ATRIAL FIBRILLATION [None]
  - CARDIAC FAILURE CHRONIC [None]
  - DYSPNOEA [None]
  - OEDEMA PERIPHERAL [None]
